FAERS Safety Report 4704075-1 (Version None)
Quarter: 2005Q2

REPORT INFORMATION
  Report Type: 
  Country: None (occurrence: None)
  Receive Date: 20050629
  Receipt Date: 20050614
  Transmission Date: 20051028
  Serious: No
  Sender: FDA-Public Use
  Company Number: 11602

PATIENT
  Age: 33 Year
  Sex: Female

DRUGS (8)
  1. DOXORUBICIN HCL [Suspect]
     Indication: HODGKIN'S DISEASE
     Dosage: 100 MG/M2 TOTAL
  2. BLEOMYCIN [Suspect]
     Indication: HODGKIN'S DISEASE
     Dosage: 40 MG/M2 TOTAL
  3. VINBLASTINE [Suspect]
     Indication: HODGKIN'S DISEASE
     Dosage: 24 MG/M2 TOTAL
  4. DACARBAZINE [Suspect]
     Indication: HODGKIN'S DISEASE
     Dosage: 600 MG/M2 TOTAL
  5. VINCRISTINE [Suspect]
     Indication: HODGKIN'S DISEASE
     Dosage: 2.8 MG/M2 TOTAL
  6. CYCLOPHOSPHAMIDE [Suspect]
     Indication: HODGKIN'S DISEASE
     Dosage: 1300 MG/M2 TOTAL
  7. PROCARBAZINE [Suspect]
     Indication: HODGKIN'S DISEASE
     Dosage: 200 MG/M2 TOTAL
  8. PREDNISONE TAB [Suspect]
     Indication: HODGKIN'S DISEASE

REACTIONS (1)
  - ACUTE PROMYELOCYTIC LEUKAEMIA [None]
